FAERS Safety Report 4798419-2 (Version None)
Quarter: 2005Q4

REPORT INFORMATION
  Report Type: 
  Country: None (occurrence: None)
  Receive Date: 20051011
  Receipt Date: 20050930
  Transmission Date: 20060501
  Serious: Yes (Hospitalization)
  Sender: FDA-Public Use
  Company Number: KII-2005-0018862

PATIENT
  Age: 49 Year
  Sex: Female

DRUGS (4)
  1. OXYCODONE HCL [Suspect]
     Indication: PAIN
     Dosage: ORAL
     Route: 048
  2. METHADONE HCL [Suspect]
     Indication: PAIN
  3. AMFETAMINE (AMFETAMINE) [Suspect]
  4. ETHANOL (ETHANOL) [Suspect]

REACTIONS (9)
  - ABNORMAL BEHAVIOUR [None]
  - AGITATION [None]
  - BLOOD PH DECREASED [None]
  - MENTAL STATUS CHANGES [None]
  - MULTIPLE DRUG OVERDOSE [None]
  - PAIN [None]
  - PCO2 INCREASED [None]
  - RESPIRATORY RATE INCREASED [None]
  - SOMNOLENCE [None]
